FAERS Safety Report 16357644 (Version 2)
Quarter: 2019Q2

REPORT INFORMATION
  Report Type: Report from Study
  Country: KR (occurrence: KR)
  Receive Date: 20190527
  Receipt Date: 20190605
  Transmission Date: 20190711
  Serious: Yes (Hospitalization, Other)
  Sender: FDA-Public Use
  Company Number: KR-BRISTOL-MYERS SQUIBB COMPANY-BMS-2019-014938

PATIENT
  Age: 50 Year
  Sex: Female
  Weight: 54 kg

DRUGS (12)
  1. NORZYME [Concomitant]
     Indication: DYSPEPSIA
     Dosage: 457.7 MG, QD
     Route: 048
     Dates: start: 20180310
  2. ULCERMIN                           /00434701/ [Concomitant]
     Indication: GASTRITIS PROPHYLAXIS
     Dosage: 15 ML, TID
     Route: 048
     Dates: start: 20180310
  3. PACLITAXEL. [Suspect]
     Active Substance: PACLITAXEL
     Indication: PRODUCT USED FOR UNKNOWN INDICATION
     Dosage: 101.12 MG, UNK
     Route: 065
     Dates: start: 20181227, end: 20190110
  4. TARGIN [Concomitant]
     Active Substance: NALOXONE HYDROCHLORIDE\OXYCODONE HYDROCHLORIDE
     Indication: MYALGIA
     Dosage: 1 TAB, BID, 5/2.5
     Route: 048
     Dates: start: 201805
  5. NIVOLUMAB [Suspect]
     Active Substance: NIVOLUMAB
     Indication: GASTRIC CANCER
     Dosage: 165.9 MG, QD
     Route: 065
     Dates: start: 20181129, end: 20190110
  6. RABIET [Concomitant]
     Indication: GASTRITIS PROPHYLAXIS
     Dosage: 20 MG, QD
     Route: 048
     Dates: start: 20180310
  7. ENTERON                            /00081601/ [Concomitant]
     Active Substance: FURAZOLIDONE
     Indication: DYSPEPSIA
     Dosage: 150 MG, BID
     Route: 048
     Dates: start: 20181127
  8. ADELAVIN NO.9 [Concomitant]
     Indication: PRODUCT USED FOR UNKNOWN INDICATION
     Dosage: 500 MG, PRN
     Route: 042
     Dates: start: 20180124
  9. PACLITAXEL. [Suspect]
     Active Substance: PACLITAXEL
     Indication: GASTRIC CANCER
     Dosage: 128 MG, UNK
     Route: 065
     Dates: start: 20181129, end: 20181206
  10. ALMAGEL-F [Concomitant]
     Indication: GASTRITIS PROPHYLAXIS
     Dosage: 15 ML, TID
     Route: 048
     Dates: start: 20180310
  11. MEGACE F [Concomitant]
     Indication: MYALGIA
     Dosage: 5 ML, PRN
     Route: 048
     Dates: start: 201805
  12. FEROBA YOU [Concomitant]
     Indication: ANAEMIA
     Dosage: 768 MG, QD
     Route: 048
     Dates: start: 20180625

REACTIONS (2)
  - Gamma-glutamyltransferase increased [Unknown]
  - Bile duct obstruction [Recovering/Resolving]

NARRATIVE: CASE EVENT DATE: 20190121
